FAERS Safety Report 5582254-1 (Version None)
Quarter: 2007Q4

REPORT INFORMATION
  Report Type: 
  Country: None (occurrence: None)
  Receive Date: 20071130
  Receipt Date: 20070822
  Transmission Date: 20080405
  Serious: No
  Sender: FDA-Public Use
  Company Number: US200705001716

PATIENT
  Age: 62 Year
  Sex: Female

DRUGS (6)
  1. BYETTA [Suspect]
     Indication: TYPE 2 DIABETES MELLITUS
     Dosage: 5 UG, 2/D, 10 UG, SUBCUTANEOUS
     Route: 058
     Dates: start: 20070301
  2. BYETTA [Suspect]
  3. METFORMIN HCL [Concomitant]
  4. PRANDIN [Concomitant]
  5. AVANDIA [Concomitant]
  6. ASPIRIN [Concomitant]

REACTIONS (5)
  - BLOOD GLUCOSE INCREASED [None]
  - ERYTHEMA [None]
  - INJECTION SITE BRUISING [None]
  - INJECTION SITE PAIN [None]
  - LIMB INJURY [None]
